FAERS Safety Report 7555554-3 (Version None)
Quarter: 2011Q2

REPORT INFORMATION
  Report Type: 
  Country: None (occurrence: None)
  Receive Date: 20110617
  Receipt Date: 20050719
  Transmission Date: 20111010
  Serious: Yes (Other)
  Sender: FDA-Public Use
  Company Number: PHHO2005BR11015

PATIENT
  Age: 66 Year
  Sex: Female
  Weight: 59 kg

DRUGS (4)
  1. EXFORGE [Suspect]
     Indication: HYPERTENSION
     Dosage: 80/5 MG, QD
     Route: 048
     Dates: start: 20050711
  2. CALCIUM CARBONATE [Concomitant]
  3. DIOVAN [Suspect]
     Dosage: 80 MG, QD
     Route: 048
  4. ASCORBIC ACID [Concomitant]

REACTIONS (2)
  - TACHYCARDIA [None]
  - HYPERTENSION [None]
